FAERS Safety Report 14904107 (Version 1)
Quarter: 2018Q2

REPORT INFORMATION
  Report Type: Spontaneous
  Country: GB (occurrence: GB)
  Receive Date: 20180516
  Receipt Date: 20180516
  Transmission Date: 20180711
  Serious: Yes (Other)
  Sender: FDA-Public Use
  Company Number: GB-BAUSCH-BL-2018-014099

PATIENT
  Age: 75 Year
  Sex: Female

DRUGS (2)
  1. REVLIMID [Suspect]
     Active Substance: LENALIDOMIDE
     Indication: PLASMA CELL MYELOMA
     Route: 048
  2. DEXAMETHASONE. [Suspect]
     Active Substance: DEXAMETHASONE
     Indication: PLASMA CELL MYELOMA
     Route: 065

REACTIONS (8)
  - Peripheral sensory neuropathy [Not Recovered/Not Resolved]
  - Fatigue [Recovered/Resolved]
  - Dry mouth [Not Recovered/Not Resolved]
  - Dysgeusia [Not Recovered/Not Resolved]
  - Cough [Recovered/Resolved]
  - Hyponatraemia [Recovered/Resolved]
  - Decreased appetite [Recovered/Resolved]
  - Neutropenia [Recovered/Resolved]

NARRATIVE: CASE EVENT DATE: 20160720
